FAERS Safety Report 7580037-4 (Version None)
Quarter: 2011Q2

REPORT INFORMATION
  Report Type: 
  Country: None (occurrence: None)
  Receive Date: 20110622
  Receipt Date: 20110607
  Transmission Date: 20111010
  Serious: Yes (Other)
  Sender: FDA-Public Use
  Company Number: TPA2011A03064

PATIENT
  Age: 78 Year
  Sex: Female

DRUGS (4)
  1. SECTRAL [Concomitant]
  2. BEFIZAL (BEZAFIBRATE) [Concomitant]
  3. ADENURIC (FEBUXOSTAT) [Suspect]
     Indication: HYPERURICAEMIA
     Dosage: 80 MG (80 MG, 1 IN 1 D) ORAL
     Route: 048
     Dates: start: 20100319, end: 20100909
  4. COLCHIMAX (COLCHICINE, TIEMONIUM METHYLSULPHATE, PAPAVER SOMNIFERUM LA [Concomitant]

REACTIONS (2)
  - LIVER INJURY [None]
  - JAUNDICE [None]
